FAERS Safety Report 7942906-2 (Version None)
Quarter: 2011Q4

REPORT INFORMATION
  Report Type: 
  Country: None (occurrence: None)
  Receive Date: 20111128
  Receipt Date: 20111115
  Transmission Date: 20120403
  Serious: Yes (Hospitalization, Other)
  Sender: FDA-Public Use
  Company Number: US-ELI_LILLY_AND_COMPANY-US201111004898

PATIENT
  Age: 44 Year
  Sex: Female

DRUGS (15)
  1. WARFARIN SODIUM [Concomitant]
     Dosage: 3 MG, QD
  2. WARFARIN SODIUM [Concomitant]
     Dosage: 4 MG, QD
  3. GABAPENTIN [Concomitant]
     Dosage: 800 MG, QID
     Route: 048
  4. MULTI-VITAMIN [Concomitant]
     Dosage: 1 DF, QD
     Route: 048
  5. OXYCODONE HCL [Concomitant]
     Dosage: 15 MG, EVERY 6 HRS
     Route: 048
  6. ACETAMINOPHEN [Concomitant]
     Indication: DIABETIC NEUROPATHY
     Dosage: 650 MG, PRN
     Route: 048
  7. WARFARIN SODIUM [Concomitant]
     Indication: ANTIPHOSPHOLIPID SYNDROME
     Dosage: UNK, QD
  8. WARFARIN SODIUM [Concomitant]
     Dosage: 5 MG, QD
  9. AMLODIPINE [Concomitant]
     Dosage: 10 MG, QD
     Route: 048
  10. LANTUS [Concomitant]
     Dosage: 12 U, EACH EVENING
  11. LIDOCAINE [Concomitant]
     Dosage: 5 %, UNKNOWN
  12. INSULIN LISPRO [Concomitant]
     Dosage: 6 U, TID
  13. CYMBALTA [Suspect]
     Indication: DEPRESSION
     Dosage: 60 MG, QD
  14. SIMVASTATIN [Concomitant]
     Dosage: 20 MG, QD
     Route: 048
  15. METOPROLOL TARTRATE [Concomitant]
     Dosage: 100 MG, BID
     Route: 048

REACTIONS (4)
  - INTERNATIONAL NORMALISED RATIO INCREASED [None]
  - DRUG INTERACTION [None]
  - ALANINE AMINOTRANSFERASE INCREASED [None]
  - ASPARTATE AMINOTRANSFERASE INCREASED [None]
